FAERS Safety Report 4848557-0 (Version None)
Quarter: 2005Q4

REPORT INFORMATION
  Report Type: 
  Country: None (occurrence: None)
  Receive Date: 20051206
  Receipt Date: 20051123
  Transmission Date: 20060501
  Serious: Yes (Hospitalization)
  Sender: FDA-Public Use
  Company Number: 2005-US-01212

PATIENT
  Age: 21 Year
  Sex: Female

DRUGS (1)
  1. CLOZAPINE [Suspect]
     Indication: AGGRESSION
     Dosage: 300 MG, QD, ORAL
     Route: 048
     Dates: start: 20040801

REACTIONS (1)
  - GASTROINTESTINAL NECROSIS [None]
